FAERS Safety Report 8676630 (Version 2)
Quarter: 2013Q4

REPORT INFORMATION
  Report Type: Spontaneous
  Country: US (occurrence: US)
  Receive Date: 20120723
  Receipt Date: 20131101
  Transmission Date: 20140711
  Serious: Yes (Hospitalization, Other)
  Sender: FDA-Public Use
  Company Number: US-009507513-1207USA005295

PATIENT
  Sex: Female

DRUGS (2)
  1. SAPHRIS [Suspect]
     Dosage: UNK
     Route: 060
  2. PROLIXIN (FLUPHENAZINE DECANOATE) [Concomitant]

REACTIONS (2)
  - Convulsion [Recovered/Resolved]
  - Convulsion [Recovered/Resolved]
